FAERS Safety Report 8587117-5 (Version None)
Quarter: 2012Q3

REPORT INFORMATION
  Report Type: 
  Country: None (occurrence: None)
  Receive Date: 20120810
  Receipt Date: 20120803
  Transmission Date: 20120928
  Serious: Yes (Other)
  Sender: FDA-Public Use
  Company Number: US-ABBOTT-12P-163-0964559-00

PATIENT
  Sex: Female

DRUGS (1)
  1. HUMIRA [Suspect]
     Indication: CROHN'S DISEASE
     Dates: start: 20111101

REACTIONS (4)
  - FEMALE GENITAL TRACT FISTULA [None]
  - PROCTALGIA [None]
  - POST PROCEDURAL COMPLICATION [None]
  - HAEMORRHOIDS [None]
